FAERS Safety Report 8582806-0 (Version None)
Quarter: 2012Q3

REPORT INFORMATION
  Report Type: 
  Country: None (occurrence: None)
  Receive Date: 20120809
  Receipt Date: 20120806
  Transmission Date: 20120928
  Serious: Yes (Other)
  Sender: FDA-Public Use
  Company Number: DE-ROCHE-1099366

PATIENT
  Sex: Male

DRUGS (2)
  1. CAPECITABINE [Suspect]
     Indication: COLORECTAL CANCER
  2. OXALIPLATIN [Concomitant]
     Indication: COLORECTAL CANCER

REACTIONS (1)
  - MUCOSAL INFLAMMATION [None]
